FAERS Safety Report 11829938 (Version 2)
Quarter: 2016Q1

REPORT INFORMATION
  Report Type: Spontaneous
  Country: JP (occurrence: JP)
  Receive Date: 20151213
  Receipt Date: 20160129
  Transmission Date: 20160525
  Serious: Yes (Hospitalization)
  Sender: FDA-Public Use
  Company Number: JP-ASTRAZENECA-2015SF23928

PATIENT
  Age: 58 Year
  Sex: Female
  Weight: 61 kg

DRUGS (5)
  1. HUMALOG [Concomitant]
     Active Substance: INSULIN LISPRO
     Indication: TYPE 2 DIABETES MELLITUS
     Dosage: 9-4-11 (THREE TIMES A DAY)
     Route: 058
  2. METGLUCO [Concomitant]
     Active Substance: METFORMIN HYDROCHLORIDE
     Indication: TYPE 2 DIABETES MELLITUS
     Dosage: 500 MG AND 1000 MG (TWO TIMES A DAY)
     Route: 048
     Dates: start: 201201
  3. EQUA [Concomitant]
     Active Substance: VILDAGLIPTIN
     Indication: TYPE 2 DIABETES MELLITUS
     Route: 048
     Dates: start: 201309
  4. PITAVASTATIN CA [Concomitant]
     Indication: DYSLIPIDAEMIA
     Route: 048
     Dates: start: 200908
  5. FORXIGA [Suspect]
     Active Substance: DAPAGLIFLOZIN
     Indication: TYPE 2 DIABETES MELLITUS
     Route: 048
     Dates: start: 20141118, end: 20151201

REACTIONS (3)
  - Urinary tract infection [Recovering/Resolving]
  - Pyelonephritis [Recovering/Resolving]
  - Escherichia sepsis [Recovering/Resolving]

NARRATIVE: CASE EVENT DATE: 20151125
